FAERS Safety Report 6444153-2 (Version None)
Quarter: 2009Q4

REPORT INFORMATION
  Report Type: 
  Country: None (occurrence: None)
  Receive Date: 20091118
  Receipt Date: 20091109
  Transmission Date: 20100525
  Serious: Yes (Other)
  Sender: FDA-Public Use
  Company Number: DE-JNJFOC-20091102529

PATIENT
  Sex: Female
  Weight: 70 kg

DRUGS (5)
  1. IMODIUM [Suspect]
     Route: 048
     Dates: start: 20091109, end: 20091109
  2. IMODIUM [Suspect]
     Indication: DRUG USE FOR UNKNOWN INDICATION
     Route: 048
     Dates: start: 20091109, end: 20091109
  3. IBUPROFEN [Suspect]
     Route: 048
     Dates: start: 20091109, end: 20091109
  4. IBUPROFEN [Suspect]
     Indication: DRUG USE FOR UNKNOWN INDICATION
     Route: 048
     Dates: start: 20091109, end: 20091109
  5. ZOPICLON [Suspect]
     Indication: DRUG USE FOR UNKNOWN INDICATION
     Route: 048
     Dates: start: 20091109, end: 20091109

REACTIONS (2)
  - INTENTIONAL DRUG MISUSE [None]
  - SUICIDE ATTEMPT [None]
